FAERS Safety Report 9735713 (Version 2)
Quarter: 2014Q1

REPORT INFORMATION
  Report Type: Spontaneous
  Country: FR (occurrence: FR)
  Receive Date: 20131206
  Receipt Date: 20140205
  Transmission Date: 20141002
  Serious: Yes (Other)
  Sender: FDA-Public Use
  Company Number: FR-ALLERGAN-1318856US

PATIENT
  Age: 67 Year
  Sex: Male

DRUGS (8)
  1. BOTOX [Suspect]
     Indication: MUSCLE SPASTICITY
     Dosage: 200 UNITS, SINGLE
     Route: 030
     Dates: start: 20130614, end: 20130614
  2. BOTOX [Suspect]
     Dosage: UNK
  3. DAPHALGAN [Concomitant]
     Indication: PRODUCT USED FOR UNKNOWN INDICATION
  4. MECIR [Concomitant]
     Indication: PRODUCT USED FOR UNKNOWN INDICATION
  5. BACLOPHENE [Concomitant]
  6. TAHOR [Concomitant]
     Indication: PRODUCT USED FOR UNKNOWN INDICATION
  7. PARIET [Concomitant]
     Indication: PRODUCT USED FOR UNKNOWN INDICATION
  8. PROZAC [Concomitant]
     Indication: PRODUCT USED FOR UNKNOWN INDICATION

REACTIONS (1)
  - Skin mass [Recovering/Resolving]
